FAERS Safety Report 5257008-6 (Version None)
Quarter: 2007Q1

REPORT INFORMATION
  Report Type: 
  Country: None (occurrence: None)
  Receive Date: 20070305
  Receipt Date: 20070305
  Transmission Date: 20070707
  Serious: Yes (Hospitalization)
  Sender: FDA-Public Use
  Company Number: None

PATIENT
  Age: 69 Year
  Sex: Male
  Weight: 126.5536 kg

DRUGS (2)
  1. FUROSEMIDE [Suspect]
     Dosage: 80MG BID PO
     Route: 048
  2. METOLAZONE [Suspect]
     Dosage: 2.5MG BID PO
     Route: 048

REACTIONS (4)
  - HYPERGLYCAEMIA [None]
  - HYPOKALAEMIA [None]
  - HYPONATRAEMIA [None]
  - TREATMENT NONCOMPLIANCE [None]
